FAERS Safety Report 9972246 (Version 1)
Quarter: 2014Q1

REPORT INFORMATION
  Report Type: Spontaneous
  Country: US (occurrence: US)
  Receive Date: 20140306
  Receipt Date: 20140306
  Transmission Date: 20141002
  Serious: Yes (Death)
  Sender: FDA-Public Use
  Company Number: US-BAYER-2014-033327

PATIENT
  Age: 43 Year
  Sex: Female
  Weight: 129 kg

DRUGS (4)
  1. YAZ [Suspect]
  2. GIANVI [Suspect]
  3. AZITHROMYCIN [Concomitant]
     Dosage: 250 MG, UNK
  4. FLUCONAZOLE [Concomitant]
     Dosage: 150 MG, UNK

REACTIONS (3)
  - Peritoneal haemorrhage [Fatal]
  - Pelvic venous thrombosis [Fatal]
  - Pulmonary embolism [Fatal]
